FAERS Safety Report 12767665 (Version 2)
Quarter: 2016Q4

REPORT INFORMATION
  Report Type: Spontaneous
  Country: IE (occurrence: IE)
  Receive Date: 20160921
  Receipt Date: 20161006
  Transmission Date: 20170207
  Serious: Yes (Hospitalization)
  Sender: FDA-Public Use
  Company Number: IE-BAXALTA-2016BLT006793

PATIENT
  Age: 3 Year
  Sex: Male
  Weight: 14.6 kg

DRUGS (3)
  1. INNOHEP [Concomitant]
     Active Substance: TINZAPARIN SODIUM
     Indication: ANTICOAGULANT THERAPY
     Dosage: 288 IU, UNK
     Route: 065
     Dates: start: 20160912, end: 20160915
  2. KIOVIG [Suspect]
     Active Substance: HUMAN IMMUNOGLOBULIN G
     Indication: CHYLOTHORAX
     Dosage: 1 G/KG, UNK
     Route: 042
     Dates: start: 20160913, end: 20160913
  3. KIOVIG [Suspect]
     Active Substance: HUMAN IMMUNOGLOBULIN G
     Indication: OFF LABEL USE

REACTIONS (5)
  - Chills [Unknown]
  - Allergy to immunoglobulin therapy [Unknown]
  - Skin discolouration [Unknown]
  - Heart rate increased [Unknown]
  - Body temperature increased [Unknown]

NARRATIVE: CASE EVENT DATE: 20160913
